FAERS Safety Report 6810921-8 (Version None)
Quarter: 2010Q2

REPORT INFORMATION
  Report Type: 
  Country: None (occurrence: None)
  Receive Date: 20100630
  Receipt Date: 20080717
  Transmission Date: 20101027
  Serious: No
  Sender: FDA-Public Use
  Company Number: US-PFIZER INC-2008047074

PATIENT
  Sex: Female
  Weight: 56.8 kg

DRUGS (2)
  1. ESTRING [Suspect]
     Indication: MENOPAUSAL SYMPTOMS
     Dates: start: 20060101, end: 20080501
  2. ZOLEDRONIC ACID [Concomitant]
     Indication: OSTEOPOROSIS
     Route: 042

REACTIONS (2)
  - DRUG INEFFECTIVE [None]
  - VAGINAL ODOUR [None]
